FAERS Safety Report 9981434 (Version 1)
Quarter: 2014Q1

REPORT INFORMATION
  Report Type: Spontaneous
  Country: US (occurrence: None)
  Receive Date: 20140306
  Receipt Date: 20140306
  Transmission Date: 20141002
  Serious: No
  Sender: FDA-Public Use
  Company Number: None

PATIENT
  Age: 18 Year
  Sex: Female
  Weight: 59.88 kg

DRUGS (1)
  1. ADDERALL XR 20 MG ACTAVIS [Suspect]
     Indication: ATTENTION DEFICIT/HYPERACTIVITY DISORDER
     Dosage: 1 PILL  TWICE DAILY  TAKEN BY MOUTH
     Route: 048

REACTIONS (6)
  - Fatigue [None]
  - Headache [None]
  - Depression [None]
  - Suicidal ideation [None]
  - Educational problem [None]
  - Product substitution issue [None]
